FAERS Safety Report 21698902 (Version 5)
Quarter: 2023Q1

REPORT INFORMATION
  Report Type: Spontaneous
  Country: US (occurrence: US)
  Receive Date: 20221208
  Receipt Date: 20230125
  Transmission Date: 20230418
  Serious: No
  Sender: FDA-Public Use
  Company Number: US-PFIZER INC-202201348385

PATIENT
  Age: 17 Year
  Sex: Male
  Weight: 69.388 kg

DRUGS (3)
  1. GENOTROPIN [Suspect]
     Active Substance: SOMATROPIN
     Indication: Blood growth hormone abnormal
     Dosage: TOOK EVERY NIGHT, 0.8MG
  2. GENOTROPIN [Suspect]
     Active Substance: SOMATROPIN
     Dosage: TOOK EVERY NIGHT, 0.8MG
  3. TESTOSTERONE [Concomitant]
     Active Substance: TESTOSTERONE
     Indication: Androgen deficiency
     Dosage: UNK

REACTIONS (3)
  - Expired device used [Unknown]
  - Drug dose omission by device [Unknown]
  - Device mechanical issue [Unknown]
